FAERS Safety Report 25753497 (Version 2)
Quarter: 2025Q3

REPORT INFORMATION
  Report Type: Report from Study
  Country: US (occurrence: US)
  Receive Date: 20250903
  Receipt Date: 20250916
  Transmission Date: 20251020
  Serious: Yes (Other)
  Sender: ABBVIE
  Company Number: US-ABBVIE-6441134

PATIENT
  Sex: Female
  Weight: 72.574 kg

DRUGS (3)
  1. VENCLEXTA [Suspect]
     Active Substance: VENETOCLAX
     Indication: Chronic lymphocytic leukaemia recurrent
     Dosage: FORM STRENGTH: 100 MILLIGRAM
     Route: 048
     Dates: start: 202410
  2. VENCLEXTA [Suspect]
     Active Substance: VENETOCLAX
     Indication: Chronic lymphocytic leukaemia recurrent
     Dosage: FORM STRENGTH: 100 MILLIGRAM
     Route: 048
     Dates: start: 202501
  3. ATENOLOL [Concomitant]
     Active Substance: ATENOLOL
     Indication: Hypertension

REACTIONS (1)
  - Cataract [Recovered/Resolved]
